FAERS Safety Report 11814803 (Version 1)
Quarter: 2015Q4

REPORT INFORMATION
  Report Type: Spontaneous
  Country: US (occurrence: US)
  Receive Date: 20151209
  Receipt Date: 20151209
  Transmission Date: 20160305
  Serious: Yes (Disabling)
  Sender: FDA-Public Use
  Company Number: US-APOTEX-2015AP015079

PATIENT
  Age: 55 Year
  Sex: Female

DRUGS (5)
  1. LEVOFLOXACIN TABLETS [Suspect]
     Active Substance: LEVOFLOXACIN
     Indication: SINUSITIS
     Dosage: 500 MG, PER DAY
     Route: 065
  2. ALENDRONATE [Concomitant]
     Active Substance: ALENDRONATE SODIUM
     Indication: OSTEOPOROSIS
     Route: 065
  3. LEVOFLOXACIN TABLETS [Suspect]
     Active Substance: LEVOFLOXACIN
     Dosage: 750 MG, UNK
     Route: 065
  4. LEVOFLOXACIN TABLETS [Suspect]
     Active Substance: LEVOFLOXACIN
     Dosage: 500 MG, PER DAY
     Route: 065
  5. LEVOFLOXACIN TABLETS [Suspect]
     Active Substance: LEVOFLOXACIN
     Indication: URINARY TRACT INFECTION
     Dosage: 500 MG, PER DAY
     Route: 065

REACTIONS (18)
  - Confusional state [Unknown]
  - Arthralgia [Unknown]
  - Affective disorder [Unknown]
  - Amnesia [Unknown]
  - Fatigue [Unknown]
  - Myalgia [Unknown]
  - Sensory disturbance [Unknown]
  - Cognitive disorder [Unknown]
  - Hearing impaired [Unknown]
  - Visual impairment [Unknown]
  - Anxiety [Unknown]
  - Neuropathy peripheral [Unknown]
  - Alopecia [Unknown]
  - Sleep disorder [Unknown]
  - Headache [Unknown]
  - Tendon disorder [Unknown]
  - Muscular weakness [Unknown]
  - Pain [Unknown]
